FAERS Safety Report 16843751 (Version 1)
Quarter: 2019Q3

REPORT INFORMATION
  Report Type: Spontaneous
  Country: JP (occurrence: JP)
  Receive Date: 20190924
  Receipt Date: 20190924
  Transmission Date: 20191005
  Serious: Yes (Other)
  Sender: FDA-Public Use
  Company Number: JP-ELI_LILLY_AND_COMPANY-JP201909009514

PATIENT
  Age: 80 Year
  Sex: Male

DRUGS (5)
  1. ASPIRIN [ACETYLSALICYLIC ACID] [Concomitant]
     Active Substance: ASPIRIN
  2. LOPERAMIDE [Concomitant]
     Active Substance: LOPERAMIDE
  3. TRULICITY [Suspect]
     Active Substance: DULAGLUTIDE
     Indication: DIABETES MELLITUS
     Dosage: UNK, WEEKLY (1/W)
     Route: 058
  4. FERROUS CITRATE [Concomitant]
     Active Substance: FERROUS CITRATE
  5. S-1TAIHO OD [Suspect]
     Active Substance: GIMERACIL\OTERACIL\TEGAFUR
     Indication: NEOPLASM MALIGNANT
     Route: 048

REACTIONS (2)
  - Neoplasm malignant [Unknown]
  - Decreased appetite [Unknown]
